FAERS Safety Report 17514400 (Version 1)
Quarter: 2020Q1

REPORT INFORMATION
  Report Type: Report from Study
  Country: US (occurrence: US)
  Receive Date: 20200307
  Receipt Date: 20200307
  Transmission Date: 20200409
  Serious: No
  Sender: FDA-Public Use
  Company Number: GXBR2015US001120

PATIENT
  Sex: Male

DRUGS (1)
  1. SOMATROPIN (RHGH) LYOPHILIZED POWDER [Suspect]
     Active Substance: SOMATROPIN
     Indication: GROWTH HORMONE DEFICIENCY
     Dosage: 0.063 MG/KG, QD
     Route: 058
     Dates: start: 20130415, end: 20141009

REACTIONS (4)
  - Obstruction [Not Recovered/Not Resolved]
  - Dacryostenosis acquired [Recovered/Resolved]
  - Sleep apnoea syndrome [Not Recovered/Not Resolved]
  - Hypersensitivity [Not Recovered/Not Resolved]

NARRATIVE: CASE EVENT DATE: 20130509
